FAERS Safety Report 11113310 (Version 1)
Quarter: 2015Q2

REPORT INFORMATION
  Report Type: Spontaneous
  Country: IT (occurrence: IT)
  Receive Date: 20150514
  Receipt Date: 20150514
  Transmission Date: 20150821
  Serious: Yes (Other)
  Sender: FDA-Public Use
  Company Number: IT-IMPAX LABORATORIES, INC-2015-IPXL-00537

PATIENT
  Age: 55 Year
  Sex: Female

DRUGS (6)
  1. METHYLPREDNISOLONE. [Suspect]
     Active Substance: METHYLPREDNISOLONE
     Indication: ATAXIA
     Dosage: 4 MG, DAILY
     Route: 065
  2. SATIVEX [Suspect]
     Active Substance: NABIXIMOLS
     Indication: MUSCLE SPASTICITY
     Dosage: UNK
     Route: 055
  3. INTERFERON BETA NOS [Concomitant]
     Active Substance: INTERFERON BETA
     Indication: RELAPSING-REMITTING MULTIPLE SCLEROSIS
     Dosage: UNK
     Route: 065
     Dates: start: 2005
  4. BACLOFEN. [Suspect]
     Active Substance: BACLOFEN
     Indication: MUSCLE SPASTICITY
     Dosage: 50 MG, DAILY
     Route: 065
  5. SATIVEX [Suspect]
     Active Substance: NABIXIMOLS
     Dosage: DAILY DOSAGE OF TEN PUFFS (2.7 MG OF THC AND 2.5 MG OF CBD PER SINGLE DOSE)
     Route: 055
  6. METHYLPREDNISOLONE. [Suspect]
     Active Substance: METHYLPREDNISOLONE
     Indication: MICTURITION URGENCY
     Dosage: 8 MG, DAILY
     Route: 065

REACTIONS (2)
  - Substance-induced mood disorder [Recovered/Resolved]
  - Drug effect incomplete [Unknown]
